FAERS Safety Report 11345217 (Version 1)
Quarter: 2015Q3

REPORT INFORMATION
  Report Type: Report from Study
  Country: US (occurrence: US)
  Receive Date: 20150806
  Receipt Date: 20150806
  Transmission Date: 20151125
  Serious: No
  Sender: FDA-Public Use
  Company Number: US-ABBVIE-15P-163-1413255-00

PATIENT
  Sex: Female

DRUGS (2)
  1. RIBASPHERE [Concomitant]
     Active Substance: RIBAVIRIN
     Indication: PRODUCT USED FOR UNKNOWN INDICATION
     Dosage: 600 MG TWICE A DAY; TAKE TOGETHER W/VIEKIRA PAK START BOTH ON SAME DAY
  2. VIEKIRA PAK [Suspect]
     Active Substance: DASABUVIR\OMBITASVIR\PARITAPREVIR\RITONAVIR
     Indication: HEPATITIS C
     Dosage: PER MANUFACTERERS PACKAGING DIRECTIONS WEEKLY PACK 28^S IN AM AND PM
     Route: 048
     Dates: start: 201503

REACTIONS (8)
  - Haemoglobin decreased [Unknown]
  - Fungal infection [Unknown]
  - Dyspnoea [Unknown]
  - Rash [Recovered/Resolved with Sequelae]
  - Erythema [Unknown]
  - Fatigue [Unknown]
  - Anaemia [Unknown]
  - Hyperaesthesia [Recovered/Resolved with Sequelae]
